FAERS Safety Report 9131915 (Version 1)
Quarter: 2013Q1

REPORT INFORMATION
  Report Type: Spontaneous
  Country: IN (occurrence: IN)
  Receive Date: 20130301
  Receipt Date: 20130301
  Transmission Date: 20140127
  Serious: Yes (Other)
  Sender: FDA-Public Use
  Company Number: IN-BAXTER-2013BAX007601

PATIENT
  Sex: Female

DRUGS (1)
  1. HUMAN ALBUMIN SOLUTION 20% (BUMINATE) [Suspect]
     Indication: PRODUCT USED FOR UNKNOWN INDICATION
     Route: 042
     Dates: start: 20130217

REACTIONS (2)
  - Chills [Unknown]
  - Pyrexia [Unknown]
